FAERS Safety Report 4942926-6 (Version None)
Quarter: 2006Q1

REPORT INFORMATION
  Report Type: 
  Country: None (occurrence: None)
  Receive Date: 20060309
  Receipt Date: 20060222
  Transmission Date: 20060701
  Serious: Yes (Hospitalization)
  Sender: FDA-Public Use
  Company Number: DE-SHR-03-008806

PATIENT
  Age: 37 Year
  Sex: Male

DRUGS (1)
  1. INTERFERON BETA-1B UNBLINDED (BETAFERON (SH Y 579E)) INJECTION, 250UG [Suspect]
     Indication: CARDIOMYOPATHY
     Dosage: 4 MIU, EVERY 2D, SUBCUTANEOUS
     Route: 058
     Dates: start: 20030403

REACTIONS (3)
  - BLOOD CREATINE PHOSPHOKINASE INCREASED [None]
  - BLOOD CREATINE PHOSPHOKINASE MB INCREASED [None]
  - TROPONIN INCREASED [None]
